FAERS Safety Report 13673087 (Version 1)
Quarter: 2017Q2

REPORT INFORMATION
  Report Type: Spontaneous
  Country: US (occurrence: US)
  Receive Date: 20170621
  Receipt Date: 20170621
  Transmission Date: 20170830
  Serious: Yes (Disabling)
  Sender: FDA-Public Use
  Company Number: None

PATIENT
  Age: 73 Year
  Sex: Female
  Weight: 83.92 kg

DRUGS (6)
  1. LEVOTHYROXINE. [Concomitant]
     Active Substance: LEVOTHYROXINE
  2. FLECAINIDE ACETATE. [Concomitant]
     Active Substance: FLECAINIDE ACETATE
  3. FUROSEMIDE. [Concomitant]
     Active Substance: FUROSEMIDE
  4. AMIODARONE HCL 200MG TABS [Suspect]
     Active Substance: AMIODARONE HYDROCHLORIDE
     Indication: CARDIAC FAILURE CONGESTIVE
     Dosage: DOSE - 2 PILLS X 2 WEEKS THEN 1 PILL A DAY?FREQUENCY - TWICE DAILY X 2 WKS, THEN 1 DAILY
     Route: 048
     Dates: start: 20170329, end: 20170510
  5. METOPROLOL TARTRATE. [Concomitant]
     Active Substance: METOPROLOL TARTRATE
  6. XARELTO [Concomitant]
     Active Substance: RIVAROXABAN

REACTIONS (6)
  - Confusional state [None]
  - Mood altered [None]
  - Restlessness [None]
  - Dizziness [None]
  - Alopecia [None]
  - Nervousness [None]

NARRATIVE: CASE EVENT DATE: 20170510
